FAERS Safety Report 6813894-7 (Version None)
Quarter: 2010Q3

REPORT INFORMATION
  Report Type: 
  Country: None (occurrence: None)
  Receive Date: 20100702
  Receipt Date: 20100622
  Transmission Date: 20110219
  Serious: Yes (Hospitalization, Disabling, Other)
  Sender: FDA-Public Use
  Company Number: US-MERCK-0805USA00418

PATIENT
  Age: 58 Year
  Sex: Male
  Weight: 78 kg

DRUGS (13)
  1. FOSAMAX [Suspect]
     Indication: OSTEOPENIA
     Route: 048
     Dates: start: 20050406, end: 20060705
  2. FOSAMAX [Suspect]
     Route: 048
     Dates: start: 20040101
  3. FUROSEMIDE [Concomitant]
     Route: 065
     Dates: start: 19950101
  4. FLUOXETINE [Concomitant]
     Indication: DEPRESSION
     Route: 065
     Dates: start: 19950101
  5. DOXAZOSIN MESYLATE [Concomitant]
     Indication: PROSTATIC DISORDER
     Route: 065
     Dates: start: 19980101
  6. GABAPENTIN [Concomitant]
     Indication: DEMYELINATING POLYNEUROPATHY
     Route: 065
     Dates: start: 19950101
  7. DICLOFENAC [Concomitant]
     Indication: INFLAMMATION
     Route: 065
     Dates: start: 19970101
  8. MISOPROSTOL [Concomitant]
     Indication: INFLAMMATION
     Route: 065
     Dates: start: 19970101
  9. OXYCODONE [Concomitant]
     Indication: PAIN
     Route: 065
     Dates: start: 19980101
  10. ALPRAZOLAM [Concomitant]
     Indication: ANXIETY
     Route: 065
     Dates: start: 19980101
  11. METOLAZONE [Concomitant]
     Route: 065
     Dates: start: 19970101
  12. OXYCODONE HYDROCHLORIDE [Concomitant]
     Indication: PAIN
     Route: 065
     Dates: start: 19980101
  13. CORTICOSTEROIDS (UNSPECIFIED) [Concomitant]
     Route: 065
     Dates: start: 19990401

REACTIONS (35)
  - ABSCESS [None]
  - ABSCESS JAW [None]
  - ACTINOMYCOSIS [None]
  - ADENOMA BENIGN [None]
  - BLOOD BILIRUBIN INCREASED [None]
  - CANDIDIASIS [None]
  - COLONIC POLYP [None]
  - COUGH [None]
  - DERMAL CYST [None]
  - DYSPNOEA EXERTIONAL [None]
  - FATIGUE [None]
  - FIBROSIS [None]
  - GINGIVAL INFECTION [None]
  - HEART VALVE INCOMPETENCE [None]
  - HYPOAESTHESIA [None]
  - HYPOAESTHESIA FACIAL [None]
  - HYPOKALAEMIA [None]
  - INFECTION [None]
  - JAW DISORDER [None]
  - LEUKOCYTOSIS [None]
  - MASS [None]
  - NEOVASCULARISATION [None]
  - ORAL DISORDER [None]
  - OSTEOMYELITIS [None]
  - OSTEONECROSIS OF JAW [None]
  - PAIN IN EXTREMITY [None]
  - PAIN IN JAW [None]
  - PYREXIA [None]
  - RED BLOOD CELL SEDIMENTATION RATE INCREASED [None]
  - SLEEP APNOEA SYNDROME [None]
  - SPINAL OSTEOARTHRITIS [None]
  - TOOTH ABSCESS [None]
  - TOOTH EROSION [None]
  - VASCULITIS [None]
  - WRONG TECHNIQUE IN DRUG USAGE PROCESS [None]
